FAERS Safety Report 25209369 (Version 2)
Quarter: 2025Q3

REPORT INFORMATION
  Report Type: Spontaneous
  Country: US (occurrence: US)
  Receive Date: 20250417
  Receipt Date: 20250909
  Transmission Date: 20251021
  Serious: No
  Sender: SANOFI AVENTIS
  Company Number: US-SA-2025SA111587

PATIENT
  Age: 4 Year
  Sex: Male

DRUGS (2)
  1. DUPIXENT [Suspect]
     Active Substance: DUPILUMAB
     Indication: Dermatitis allergic
     Dosage: 300 MG, Q4W
     Route: 058
     Dates: start: 202410
  2. DUPIXENT [Suspect]
     Active Substance: DUPILUMAB
     Indication: Eczema

REACTIONS (12)
  - Eczema [Unknown]
  - Skin exfoliation [Unknown]
  - Rash pruritic [Unknown]
  - Skin swelling [Unknown]
  - Skin warm [Unknown]
  - Dermatitis allergic [Unknown]
  - Rebound effect [Unknown]
  - Loss of personal independence in daily activities [Unknown]
  - Affective disorder [Unknown]
  - Rash [Unknown]
  - Pruritus [Unknown]
  - Insomnia [Unknown]

NARRATIVE: CASE EVENT DATE: 20250101
